FAERS Safety Report 15605197 (Version 2)
Quarter: 2018Q4

REPORT INFORMATION
  Report Type: Spontaneous
  Country: FR (occurrence: FR)
  Receive Date: 20181112
  Receipt Date: 20181114
  Transmission Date: 20190205
  Serious: Yes (Hospitalization)
  Sender: FDA-Public Use
  Company Number: FR-ACCORD-091718

PATIENT
  Age: 86 Year
  Sex: Male
  Weight: 67 kg

DRUGS (4)
  1. METHOTREXATE. [Suspect]
     Active Substance: METHOTREXATE
     Indication: PSORIASIS
     Route: 058
     Dates: start: 20180209, end: 20180423
  2. FOLIC ACID. [Concomitant]
     Active Substance: FOLIC ACID
  3. COVERAM [Concomitant]
     Active Substance: AMLODIPINE\PERINDOPRIL
     Dosage: 5 MG / 5 MG TABLETS
  4. ALDACTONE [Concomitant]
     Active Substance: SPIRONOLACTONE
     Dosage: FILM-COATED TABLETS

REACTIONS (2)
  - Interstitial lung disease [Recovering/Resolving]
  - Lung disorder [Not Recovered/Not Resolved]

NARRATIVE: CASE EVENT DATE: 201803
